FAERS Safety Report 12518588 (Version 1)
Quarter: 2016Q2

REPORT INFORMATION
  Report Type: Spontaneous
  Country: JP (occurrence: JP)
  Receive Date: 20160630
  Receipt Date: 20160630
  Transmission Date: 20160815
  Serious: Yes (Death, Other)
  Sender: FDA-Public Use
  Company Number: JP-009507513-1606JPN004529

PATIENT
  Age: 73 Year
  Sex: Male

DRUGS (1)
  1. TIENAM FOR INTRAMUSCULAR INJECTION 0.5G [Suspect]
     Active Substance: CILASTATIN SODIUM\IMIPENEM
     Indication: PNEUMONIA ASPIRATION
     Dosage: DAILY DOSAGE UNKNOWN, FOR ONE WEEK
     Route: 051

REACTIONS (3)
  - Death [Fatal]
  - Bone marrow failure [Unknown]
  - C-reactive protein increased [Unknown]
